FAERS Safety Report 11796595 (Version 1)
Quarter: 2015Q4

REPORT INFORMATION
  Report Type: Spontaneous
  Country: US (occurrence: US)
  Receive Date: 20151203
  Receipt Date: 20151203
  Transmission Date: 20160305
  Serious: Yes (Other)
  Sender: FDA-Public Use
  Company Number: US-CELGENE-USA-2015116557

PATIENT

DRUGS (7)
  1. AZACITIDINE (NOVAPLUS) [Suspect]
     Active Substance: AZACITIDINE
     Indication: LYMPHOMA
     Dosage: 15-35MG/M2
     Route: 041
  2. GEMCITABINE [Suspect]
     Active Substance: GEMCITABINE\GEMCITABINE HYDROCHLORIDE
     Indication: LYMPHOMA
     Route: 041
  3. GEMCITABINE [Suspect]
     Active Substance: GEMCITABINE\GEMCITABINE HYDROCHLORIDE
     Route: 041
  4. BUSULFAN [Suspect]
     Active Substance: BUSULFAN
     Indication: LYMPHOMA
     Dosage: TARGET DAILY AUC OF 4000
     Route: 065
  5. MELPHALAN [Suspect]
     Active Substance: MELPHALAN
     Indication: LYMPHOMA
     Route: 065
  6. RITUXIMAB [Suspect]
     Active Substance: RITUXIMAB
     Indication: LYMPHOMA
     Dosage: 60 MILLIGRAM/SQ. METER
     Route: 065
  7. VORINOSTAT [Suspect]
     Active Substance: VORINOSTAT
     Indication: LYMPHOMA
     Route: 048

REACTIONS (4)
  - Blood bilirubin increased [Unknown]
  - Dermatitis [Unknown]
  - Mucosal inflammation [Unknown]
  - Transaminases increased [Unknown]
